FAERS Safety Report 13897003 (Version 1)
Quarter: 2017Q3

REPORT INFORMATION
  Report Type: Spontaneous
  Country: US (occurrence: US)
  Receive Date: 20170821
  Receipt Date: 20170821
  Transmission Date: 20171127
  Serious: Yes (Hospitalization, Other)
  Sender: FDA-Public Use
  Company Number: None

PATIENT
  Age: 21 Year
  Sex: Female
  Weight: 50.4 kg

DRUGS (6)
  1. AMITRYPTILINE [Concomitant]
     Active Substance: AMITRIPTYLINE
  2. SUMATRIPTAN. [Concomitant]
     Active Substance: SUMATRIPTAN
  3. EQUATE COMPLETE MULTIVITAMIN [Concomitant]
     Active Substance: VITAMINS
  4. TRIPLE MAGNESIUM COMPLEX [Concomitant]
  5. IBUPROFEN. [Concomitant]
     Active Substance: IBUPROFEN
  6. PROPRANOLOL HCL ER 24 HR 80 MG CAP BREC [Suspect]
     Active Substance: PROPRANOLOL HYDROCHLORIDE
     Indication: MIGRAINE PROPHYLAXIS
     Dosage: ?          QUANTITY:1 CAPSULE(S);?
     Route: 048
     Dates: start: 20170731, end: 20170817

REACTIONS (8)
  - Asthenia [None]
  - Dysphemia [None]
  - Hypoaesthesia [None]
  - Paraesthesia [None]
  - Speech disorder [None]
  - Movement disorder [None]
  - Peripheral coldness [None]
  - Fatigue [None]

NARRATIVE: CASE EVENT DATE: 20170820
